FAERS Safety Report 4427817-1 (Version None)
Quarter: 2004Q3

REPORT INFORMATION
  Report Type: 
  Country: None (occurrence: None)
  Receive Date: 20040817
  Receipt Date: 20040802
  Transmission Date: 20050211
  Serious: Yes (Other)
  Sender: FDA-Public Use
  Company Number: PHEH2004US08463

PATIENT
  Age: 30 Year
  Sex: Female
  Weight: 54 kg

DRUGS (3)
  1. TEGRETOL-XR [Suspect]
     Indication: TONIC CONVULSION
     Dosage: 200 MG, BID
     Route: 048
     Dates: start: 20020123, end: 20040701
  2. TEGRETOL-XR [Suspect]
     Dosage: 200 MG, BID
     Dates: start: 20040101
  3. FOLIC ACID [Concomitant]

REACTIONS (3)
  - ABORTION SPONTANEOUS [None]
  - CONVULSION [None]
  - DRUG EXPOSURE DURING PREGNANCY [None]
